FAERS Safety Report 26097636 (Version 2)
Quarter: 2025Q4

REPORT INFORMATION
  Report Type: Report from Study
  Country: US (occurrence: US)
  Receive Date: 20251127
  Receipt Date: 20251204
  Transmission Date: 20260118
  Serious: No
  Sender: MALLINCKRODT
  Company Number: US-MALLINCKRODT-MNK202507515

PATIENT
  Age: 40 Year
  Sex: Female

DRUGS (1)
  1. CORTICOTROPIN [Suspect]
     Active Substance: CORTICOTROPIN
     Indication: Iridocyclitis
     Dosage: 80 UNITS
     Route: 058
     Dates: start: 20251121

REACTIONS (6)
  - Stress [Unknown]
  - Fear of injection [Not Recovered/Not Resolved]
  - Headache [Unknown]
  - Injection site bruising [Unknown]
  - Injection site pain [Unknown]
  - Injection site pruritus [Unknown]

NARRATIVE: CASE EVENT DATE: 20250101
